FAERS Safety Report 21799181 (Version 1)
Quarter: 2022Q4

REPORT INFORMATION
  Report Type: Spontaneous
  Country: US (occurrence: None)
  Receive Date: 20221229
  Receipt Date: 20221229
  Transmission Date: 20230112
  Serious: Yes (Hospitalization)
  Sender: FDA-Public Use
  Company Number: None

PATIENT
  Age: 3 Year
  Sex: Male

DRUGS (1)
  1. ADVATE [Suspect]
     Active Substance: ANTIHEMOPHILIC FACTOR, HUMAN RECOMBINANT
     Indication: Factor VIII deficiency
     Dosage: 700 UNITS  IV? ?700 UNITS (630-770) SLOW IV PUSH 3 DAYS PER WEEK ON MONDAYS, WEDNESDAYS, AND FRIDAYS
     Route: 042
     Dates: start: 20220915

REACTIONS (1)
  - Dehydration [None]

NARRATIVE: CASE EVENT DATE: 20221203
